FAERS Safety Report 25142909 (Version 1)
Quarter: 2025Q2

REPORT INFORMATION
  Report Type: Report from Study
  Country: US (occurrence: US)
  Receive Date: 20250401
  Receipt Date: 20250401
  Transmission Date: 20250716
  Serious: Yes (Other)
  Sender: ABBVIE
  Company Number: US-ABBVIE-6197340

PATIENT
  Age: 50 Year
  Sex: Female

DRUGS (1)
  1. RINVOQ [Suspect]
     Active Substance: UPADACITINIB
     Indication: Crohn^s disease
     Route: 048
     Dates: start: 20240203

REACTIONS (8)
  - Loss of consciousness [Unknown]
  - Dizziness [Not Recovered/Not Resolved]
  - Fall [Not Recovered/Not Resolved]
  - Head injury [Unknown]
  - Diarrhoea [Unknown]
  - Haemorrhage [Unknown]
  - Palpitations [Unknown]
  - Cold sweat [Unknown]

NARRATIVE: CASE EVENT DATE: 20250301
